FAERS Safety Report 19349511 (Version 1)
Quarter: 2021Q2

REPORT INFORMATION
  Report Type: Other
  Country: US (occurrence: US)
  Receive Date: 20210531
  Receipt Date: 20210531
  Transmission Date: 20210717
  Serious: Yes (Other)
  Sender: FDA-Public Use
  Company Number: US-INTERCEPT-PM2021001786

PATIENT
  Age: 72 Year
  Sex: Female

DRUGS (2)
  1. OCALIVA [Suspect]
     Active Substance: OBETICHOLIC ACID
     Indication: PRIMARY BILIARY CHOLANGITIS
     Dosage: 5 MILLIGRAM, QD
     Route: 048
     Dates: start: 20191204
  2. URSODIOL. [Concomitant]
     Active Substance: URSODIOL

REACTIONS (1)
  - Pancreatic enlargement [Not Recovered/Not Resolved]

NARRATIVE: CASE EVENT DATE: 20210426
